FAERS Safety Report 8758792 (Version 1)
Quarter: 2012Q4

REPORT INFORMATION
  Report Type: Spontaneous
  Country: US (occurrence: None)
  Receive Date: 20120828
  Receipt Date: 20120828
  Transmission Date: 20130627
  Serious: Yes (Disabling)
  Sender: FDA-Public Use
  Company Number: None

PATIENT
  Age: 88 Year
  Weight: 90.27 kg

DRUGS (1)
  1. AVASTIN [Suspect]
     Indication: WET MACULAR DEGENERATION
     Dates: start: 20110910, end: 20120619

REACTIONS (5)
  - Blindness unilateral [None]
  - Eye infection [None]
  - Product quality issue [None]
  - Product contamination microbial [None]
  - Product contamination microbial [None]
